FAERS Safety Report 9455882 (Version 1)
Quarter: 2013Q3

REPORT INFORMATION
  Report Type: Spontaneous
  Country: GB (occurrence: None)
  Receive Date: 20130808
  Receipt Date: 20130808
  Transmission Date: 20140515
  Serious: Yes (Other)
  Sender: FDA-Public Use
  Company Number: GER/UKI/13/0033785

PATIENT
  Age: 55 Year
  Sex: Female

DRUGS (7)
  1. ANASTROZOLE (ANASTROZOLE) [Suspect]
     Indication: PRODUCT USED FOR UNKNOWN INDICATION
     Dates: start: 2011
  2. ZOLEDRONIC ACID (ZOLEDRONIC ACID) [Suspect]
     Indication: PRODUCT USED FOR UNKNOWN INDICATION
     Dates: start: 2010
  3. EVEROLIMUS [Suspect]
     Indication: PRODUCT USED FOR UNKNOWN INDICATION
  4. CYCLOPHOSPHAMIDE (CYCLOPHOSPHAMIDE) [Concomitant]
  5. DOCETAZEL (DOCETAXEL) [Concomitant]
  6. EPIRUBICIN (EPIRUBICIN) (EPIRUBICIN) [Concomitant]
  7. FLUOROURACIL (FLUOROURACIL) [Concomitant]

REACTIONS (7)
  - Cough [None]
  - Fatigue [None]
  - Metastases to liver [None]
  - Metastases to lung [None]
  - Rash [None]
  - Dyspnoea [None]
  - Malignant neoplasm progression [None]
